FAERS Safety Report 16952568 (Version 1)
Quarter: 2019Q4

REPORT INFORMATION
  Report Type: Spontaneous
  Country: US (occurrence: US)
  Receive Date: 20190904
  Receipt Date: 20190904
  Transmission Date: 20200122
  Serious: No
  Sender: FDA-Public Use
  Company Number: None

PATIENT
  Age: 60 Year
  Sex: Female

DRUGS (1)
  1. KISQALI [Suspect]
     Active Substance: RIBOCICLIB
     Indication: BREAST CANCER
     Route: 048
     Dates: start: 201906

REACTIONS (4)
  - Pain in extremity [None]
  - Abdominal distension [None]
  - Feeling of despair [None]
  - Depressed mood [None]

NARRATIVE: CASE EVENT DATE: 20190904
